FAERS Safety Report 5062468-X (Version None)
Quarter: 2006Q3

REPORT INFORMATION
  Report Type: 
  Country: None (occurrence: None)
  Receive Date: 20060721
  Receipt Date: 20060703
  Transmission Date: 20061208
  Serious: Yes (Hospitalization)
  Sender: FDA-Public Use
  Company Number: 2006RR-02903

PATIENT
  Age: 72 Year
  Sex: Female

DRUGS (4)
  1. SIMVASTATIN [Suspect]
     Indication: MYOCARDIAL ISCHAEMIA
     Dosage: ORAL
     Route: 048
  2. DILTIAZEM [Suspect]
     Indication: MYOCARDIAL ISCHAEMIA
     Dosage: 240 MG DAILY, ORAL
     Route: 048
  3. ASPIRIN [Concomitant]
  4. ISOSORBIDE MONONITRATE [Concomitant]

REACTIONS (12)
  - ALANINE AMINOTRANSFERASE INCREASED [None]
  - ASPARTATE AMINOTRANSFERASE INCREASED [None]
  - ASTHENIA [None]
  - BLOOD LACTATE DEHYDROGENASE INCREASED [None]
  - BLOOD PRESSURE SYSTOLIC INCREASED [None]
  - BODY TEMPERATURE DECREASED [None]
  - HYPOTENSION [None]
  - MOVEMENT DISORDER [None]
  - MYALGIA [None]
  - PAIN [None]
  - RHABDOMYOLYSIS [None]
  - URINE ABNORMALITY [None]
